FAERS Safety Report 6741223-6 (Version None)
Quarter: 2010Q2

REPORT INFORMATION
  Report Type: 
  Country: None (occurrence: None)
  Receive Date: 20100526
  Receipt Date: 20100521
  Transmission Date: 20101027
  Serious: Yes (Death, Other)
  Sender: FDA-Public Use
  Company Number: PHHY2010GB01430

PATIENT
  Sex: Male

DRUGS (6)
  1. CLOZARIL [Suspect]
     Indication: SCHIZOPHRENIA
     Dosage: 250MG DAILY
     Route: 048
     Dates: start: 20020130
  2. CLOZARIL [Suspect]
     Dosage: 300MG NOCTE
     Route: 048
  3. FLUOXETINE [Suspect]
     Dosage: 40MG MANE
  4. FOLIC ACID [Concomitant]
     Dosage: 5 MG, QD
  5. FERROUS SULFATE TAB [Concomitant]
     Dosage: 200MG MANE
  6. VITAMIN B-12 [Concomitant]
     Indication: ANAEMIA
     Dosage: INJECTION EVERY 3 MONTHS

REACTIONS (16)
  - ANAEMIA VITAMIN B12 DEFICIENCY [None]
  - APATHY [None]
  - BLOOD PRESSURE INCREASED [None]
  - CARDIAC DISORDER [None]
  - DEATH [None]
  - DEPRESSED MOOD [None]
  - DRUG INTERACTION [None]
  - HALLUCINATION, AUDITORY [None]
  - HEART RATE INCREASED [None]
  - HERNIA [None]
  - LETHARGY [None]
  - SALIVARY HYPERSECRETION [None]
  - SCHIZOPHRENIA, RESIDUAL TYPE [None]
  - SOCIAL AVOIDANT BEHAVIOUR [None]
  - STRESS [None]
  - SUICIDE ATTEMPT [None]
